FAERS Safety Report 7870256-1 (Version None)
Quarter: 2011Q4

REPORT INFORMATION
  Report Type: 
  Country: None (occurrence: None)
  Receive Date: 20111028
  Receipt Date: 20111024
  Transmission Date: 20120403
  Serious: Yes (Hospitalization)
  Sender: FDA-Public Use
  Company Number: DE-AMGEN-DEUSP2011047777

PATIENT
  Age: 64 Year
  Sex: Male

DRUGS (6)
  1. XGEVA [Suspect]
     Dosage: UNK
     Dates: start: 20110915
  2. NOVAMINSULFON [Concomitant]
     Indication: PAIN
     Route: 048
  3. HYDROMORPHONE HCL [Concomitant]
     Indication: PAIN
  4. XGEVA [Suspect]
     Indication: METASTASES TO BONE
     Dosage: 120 MG, Q4WK
     Route: 058
     Dates: start: 20110818, end: 20110915
  5. IBUPROFEN [Concomitant]
     Indication: PAIN
     Dosage: 600 MG, UNK
  6. ALLOPURINOL [Concomitant]
     Indication: HYPERURICAEMIA
     Dosage: 100 MG, UNK

REACTIONS (4)
  - NAUSEA [None]
  - VERTIGO [None]
  - HYPERMETROPIA [None]
  - VOMITING [None]
